FAERS Safety Report 9846426 (Version 1)
Quarter: 2013Q4

REPORT INFORMATION
  Report Type: Spontaneous
  Country: US (occurrence: None)
  Receive Date: 20131223
  Receipt Date: 20131223
  Transmission Date: 20140711
  Serious: No
  Sender: FDA-Public Use
  Company Number: CABO-13003345

PATIENT
  Age: 46 Year
  Sex: Male

DRUGS (3)
  1. COMETRIQ (CABOZANTINIB) CAPSULE [Suspect]
     Indication: THYROID CANCER
     Route: 048
     Dates: start: 20130830, end: 2013
  2. SYNTHROID (LEVOTHYROXINE SODIUM) [Concomitant]
  3. VITAMIN D (COLECALCIFEROL) [Concomitant]

REACTIONS (6)
  - Haemoptysis [None]
  - Dyspnoea [None]
  - Hyperhidrosis [None]
  - Musculoskeletal chest pain [None]
  - Nausea [None]
  - Neutropenia [None]
